FAERS Safety Report 15012096 (Version 2)
Quarter: 2018Q3

REPORT INFORMATION
  Report Type: Spontaneous
  Country: US (occurrence: US)
  Receive Date: 20180614
  Receipt Date: 20180820
  Transmission Date: 20181010
  Serious: Yes (Life-Threatening, Hospitalization, Other)
  Sender: FDA-Public Use
  Company Number: PHEH2018US023155

PATIENT
  Age: 11 Year
  Sex: Male
  Weight: 68 kg

DRUGS (4)
  1. BACTRIM [Concomitant]
     Active Substance: SULFAMETHOXAZOLE\TRIMETHOPRIM
     Indication: PRODUCT USED FOR UNKNOWN INDICATION
     Route: 065
  2. JADENU [Suspect]
     Active Substance: DEFERASIROX
     Dosage: UNK
     Route: 065
     Dates: start: 201612, end: 20180607
  3. JADENU [Suspect]
     Active Substance: DEFERASIROX
     Indication: IRON OVERLOAD
     Dosage: UNK, QD
     Route: 048
     Dates: start: 20120601
  4. PREDNISONE. [Concomitant]
     Active Substance: PREDNISONE
     Indication: PRODUCT USED FOR UNKNOWN INDICATION
     Route: 065

REACTIONS (17)
  - Vomiting [Recovered/Resolved]
  - Lactic acidosis [Unknown]
  - Mental impairment [Recovered/Resolved]
  - Acute hepatic failure [Recovered/Resolved]
  - Somnolence [Unknown]
  - Coma scale [Recovered/Resolved]
  - Gastroenteritis [Recovered/Resolved]
  - Transaminases increased [Recovered/Resolved]
  - Encephalopathy [Recovering/Resolving]
  - Aphasia [Unknown]
  - Full blood count decreased [Unknown]
  - Seizure [Recovered/Resolved]
  - Diarrhoea [Recovered/Resolved]
  - Nausea [Recovered/Resolved]
  - Confusional state [Unknown]
  - Hyperammonaemia [Recovered/Resolved]
  - Aggression [Unknown]

NARRATIVE: CASE EVENT DATE: 20180606
